APPROVED DRUG PRODUCT: BEKYREE
Active Ingredient: DESOGESTREL; ETHINYL ESTRADIOL
Strength: 0.15MG,N/A;0.02MG,0.01MG
Dosage Form/Route: TABLET;ORAL-28
Application: A202226 | Product #001 | TE Code: AB
Applicant: LUPIN LTD
Approved: Aug 12, 2015 | RLD: No | RS: No | Type: RX